FAERS Safety Report 22340291 (Version 1)
Quarter: 2023Q2

REPORT INFORMATION
  Report Type: Report from Study
  Country: US (occurrence: US)
  Receive Date: 20230518
  Receipt Date: 20230518
  Transmission Date: 20230721
  Serious: Yes (Death)
  Sender: FDA-Public Use
  Company Number: US-DSJP-DSU-2023-119646

PATIENT
  Age: 65 Year
  Sex: Male

DRUGS (1)
  1. ENHERTU [Suspect]
     Active Substance: FAM-TRASTUZUMAB DERUXTECAN-NXKI
     Indication: Product used for unknown indication
     Dosage: 900 MG, ONCE EVERY 3 WK, OVER 90 MINUTES
     Route: 042
     Dates: start: 20230426, end: 20230426

REACTIONS (1)
  - Death [Fatal]

NARRATIVE: CASE EVENT DATE: 20230514
